FAERS Safety Report 23755983 (Version 1)
Quarter: 2024Q2

REPORT INFORMATION
  Report Type: Spontaneous
  Country: CO (occurrence: CO)
  Receive Date: 20240418
  Receipt Date: 20240418
  Transmission Date: 20240716
  Serious: Yes (Other)
  Sender: FDA-Public Use
  Company Number: CO-SA-SAC20240417000374

PATIENT
  Age: 61 Year
  Sex: Female
  Weight: 84 kg

DRUGS (1)
  1. DUPILUMAB [Suspect]
     Active Substance: DUPILUMAB
     Indication: Asthma
     Dosage: 300 MG, QOW
     Route: 065
     Dates: start: 20240123

REACTIONS (6)
  - Asphyxia [Unknown]
  - Influenza [Unknown]
  - Cough [Unknown]
  - Nasal congestion [Unknown]
  - Respiratory tract congestion [Unknown]
  - Productive cough [Unknown]

NARRATIVE: CASE EVENT DATE: 20240408
